FAERS Safety Report 6096092-7 (Version None)
Quarter: 2009Q1

REPORT INFORMATION
  Report Type: 
  Country: None (occurrence: None)
  Receive Date: 20090227
  Receipt Date: 20081114
  Transmission Date: 20090719
  Serious: No
  Sender: FDA-Public Use
  Company Number: A0745410A

PATIENT
  Age: 17 Year
  Sex: Female

DRUGS (3)
  1. LAMICTAL [Suspect]
     Indication: PARTIAL SEIZURES
     Dosage: 12.5MG ALTERNATE DAYS
     Route: 048
     Dates: start: 20080811, end: 20080905
  2. TRILEPTAL [Suspect]
  3. ALLERGY MEDICATION [Concomitant]
     Indication: SEASONAL ALLERGY

REACTIONS (7)
  - ALOPECIA [None]
  - BRUXISM [None]
  - CRYING [None]
  - FRUSTRATION [None]
  - PAIN IN JAW [None]
  - PANIC ATTACK [None]
  - STRESS [None]
